FAERS Safety Report 8345269-6 (Version None)
Quarter: 2012Q2

REPORT INFORMATION
  Report Type: 
  Country: None (occurrence: None)
  Receive Date: 20120508
  Receipt Date: 20120507
  Transmission Date: 20120825
  Serious: No
  Sender: FDA-Public Use
  Company Number: US-PFIZER INC-2012110496

PATIENT
  Sex: Male
  Weight: 63.5 kg

DRUGS (3)
  1. CELEBREX [Suspect]
     Indication: SPINAL COLUMN STENOSIS
     Dosage: 200 MG, DAILY
     Route: 048
     Dates: start: 20120422, end: 20120430
  2. LIPITOR [Concomitant]
     Dosage: 5 MG, ALTERNATE DAY,EVERY OTHER DAY
  3. CELEBREX [Suspect]
     Indication: SPONDYLITIS

REACTIONS (1)
  - PROSTATIC SPECIFIC ANTIGEN INCREASED [None]
